FAERS Safety Report 20351374 (Version 1)
Quarter: 2022Q1

REPORT INFORMATION
  Report Type: Spontaneous
  Country: JP (occurrence: JP)
  Receive Date: 20220119
  Receipt Date: 20220119
  Transmission Date: 20220423
  Serious: Yes (Hospitalization, Other)
  Sender: FDA-Public Use
  Company Number: JP-ANIPHARMA-2022-JP-000015

PATIENT
  Sex: Male

DRUGS (13)
  1. CASODEX [Suspect]
     Active Substance: BICALUTAMIDE
     Indication: Prostate cancer
     Dosage: 80 MG DAILY
     Route: 048
     Dates: start: 20211026
  2. CHLORPHENIRAMINE MALEATE [Concomitant]
     Active Substance: CHLORPHENIRAMINE MALEATE
     Dosage: 6 MG DAILY
     Dates: start: 202104
  3. BECLOMETHASONE DIPROPIONATE [Concomitant]
     Active Substance: BECLOMETHASONE DIPROPIONATE
     Dosage: PROPER DOSE, BID
     Route: 065
     Dates: start: 202104
  4. UNSPECIFIED INGREDIENT [Concomitant]
     Active Substance: UNSPECIFIED INGREDIENT
     Dosage: PROPER DOSE, BID
     Route: 065
     Dates: start: 202104
  5. UREA [Concomitant]
     Active Substance: UREA
     Dosage: PROPER DOSE, 2-3 TIMES
     Route: 065
  6. ENHERTU [Suspect]
     Active Substance: FAM-TRASTUZUMAB DERUXTECAN-NXKI
     Dosage: 6.4 MG/KG Q3WK
     Dates: start: 20211207, end: 20211207
  7. CARBOCYSTEINE [Concomitant]
     Active Substance: CARBOCYSTEINE
     Dosage: 500 MG Q12H
     Route: 048
     Dates: start: 2018
  8. ERYTHROCIN [Concomitant]
     Active Substance: ERYTHROMYCIN LACTOBIONATE
     Dosage: 200 MG Q12H
     Route: 048
     Dates: start: 2018
  9. MAGNESIUM OXIDE [Concomitant]
     Active Substance: MAGNESIUM OXIDE
     Dosage: 660 MG Q8H
     Route: 048
     Dates: start: 2020
  10. BIO-THREE [Concomitant]
     Active Substance: HERBALS
     Dosage: 1 DF Q8H
     Route: 048
     Dates: start: 2020
  11. ASCORBIC ACID, CALCIUM, CALCIUM FERROUS CITRATE, CALCIUM PANTOTHENATE, [Concomitant]
     Dosage: 100 UG/INHAL DAILY
     Route: 048
     Dates: start: 2016
  12. NAFTOPIDIL [Concomitant]
     Active Substance: NAFTOPIDIL
     Dosage: 25 MG DAILY
     Route: 048
     Dates: start: 20210727
  13. EPINASTINE HYDROCHLORIDE [Concomitant]
     Active Substance: EPINASTINE HYDROCHLORIDE
     Dosage: 40 MG DAILY
     Route: 048
     Dates: start: 202104

REACTIONS (3)
  - Neutropenia [Recovered/Resolved]
  - Decreased appetite [Unknown]
  - Off label use [Recovered/Resolved]

NARRATIVE: CASE EVENT DATE: 20211026
